FAERS Safety Report 16669086 (Version 1)
Quarter: 2019Q3

REPORT INFORMATION
  Report Type: Spontaneous
  Country: JP (occurrence: JP)
  Receive Date: 20190805
  Receipt Date: 20190805
  Transmission Date: 20191004
  Serious: Yes (Other)
  Sender: FDA-Public Use
  Company Number: JP-ELI_LILLY_AND_COMPANY-JP201903006485

PATIENT
  Age: 54 Year
  Sex: Male

DRUGS (2)
  1. CYRAMZA [Suspect]
     Active Substance: RAMUCIRUMAB
     Indication: GASTRIC CANCER STAGE III
     Dosage: 8 MG/KG, OTHER
     Route: 041
  2. PACLITAXEL. [Concomitant]
     Active Substance: PACLITAXEL
     Indication: GASTRIC CANCER STAGE III
     Dosage: 80 MG/M2, OTHER
     Route: 041

REACTIONS (4)
  - Systemic candida [Unknown]
  - Abdominal abscess [Unknown]
  - Jejunal perforation [Unknown]
  - Postoperative wound infection [Unknown]
